FAERS Safety Report 21650600 (Version 4)
Quarter: 2022Q4

REPORT INFORMATION
  Report Type: Spontaneous
  Country: FI (occurrence: None)
  Receive Date: 20221128
  Receipt Date: 20221220
  Transmission Date: 20230112
  Serious: Yes (Death, Hospitalization, Other)
  Sender: FDA-Public Use
  Company Number: FI-Merck Healthcare KGaA-9368209

PATIENT
  Age: 81 Year
  Sex: Male

DRUGS (3)
  1. BAVENCIO [Suspect]
     Active Substance: AVELUMAB
     Indication: Transitional cell carcinoma
     Dosage: 800 MG
     Route: 042
     Dates: start: 20221005, end: 20221101
  2. PROLIA [Concomitant]
     Active Substance: DENOSUMAB
     Indication: Osteoporosis
     Route: 030
     Dates: start: 20220426
  3. SIMVASTATIN [Concomitant]
     Active Substance: SIMVASTATIN
     Indication: Hypercholesterolaemia
     Route: 048
     Dates: start: 2021

REACTIONS (12)
  - Ventricular tachycardia [Fatal]
  - Blood creatinine increased [Fatal]
  - Cortisol increased [Fatal]
  - C-reactive protein increased [Fatal]
  - Blood lactate dehydrogenase increased [Fatal]
  - Alanine aminotransferase increased [Fatal]
  - General physical health deterioration [Fatal]
  - Pulmonary embolism [Unknown]
  - Pneumonia bacterial [Unknown]
  - Delirium [Unknown]
  - Myocarditis [Fatal]
  - Myositis [Not Recovered/Not Resolved]

NARRATIVE: CASE EVENT DATE: 20221031
